FAERS Safety Report 10034991 (Version 1)
Quarter: 2014Q1

REPORT INFORMATION
  Report Type: Spontaneous
  Country: US (occurrence: None)
  Receive Date: 20140321
  Receipt Date: 20140321
  Transmission Date: 20141002
  Serious: Yes (Death)
  Sender: FDA-Public Use
  Company Number: UTC-046155

PATIENT
  Age: 65 Year
  Sex: Female
  Weight: 74.84 kg

DRUGS (3)
  1. TYVASO (0.6 MILLIGRAM/MILLILITERS, AEROSOL FOR INHALATION) (TREPROSTNIL SODIUM) [Suspect]
     Indication: COR PULMONALE CHRONIC
     Dosage: 4 IN 1 D
     Route: 055
     Dates: start: 20130719
  2. ADCIRCA [Concomitant]
  3. TRACLEER [Concomitant]

REACTIONS (1)
  - Death [None]
